FAERS Safety Report 8498752-7 (Version None)
Quarter: 2012Q3

REPORT INFORMATION
  Report Type: 
  Country: None (occurrence: None)
  Receive Date: 20120709
  Receipt Date: 20120629
  Transmission Date: 20120928
  Serious: No
  Sender: FDA-Public Use
  Company Number: US-AMGEN-USASP2012040388

PATIENT
  Age: 56 Year
  Sex: Male

DRUGS (4)
  1. ENBREL [Suspect]
     Indication: RHEUMATOID ARTHRITIS
     Dosage: 50 MG, QWK
     Dates: start: 20120619
  2. ARAVA [Concomitant]
     Dosage: UNK
     Dates: start: 20110101
  3. METHOTREXATE [Concomitant]
     Dosage: UNK
     Dates: start: 20090101
  4. PLAQUENIL [Concomitant]
     Dosage: UNK
     Dates: start: 20090101

REACTIONS (3)
  - INJECTION SITE PAIN [None]
  - DRUG INEFFECTIVE [None]
  - NAUSEA [None]
